FAERS Safety Report 5472364-1 (Version None)
Quarter: 2007Q3

REPORT INFORMATION
  Report Type: 
  Country: None (occurrence: None)
  Receive Date: 20070930
  Receipt Date: 20070919
  Transmission Date: 20080115
  Serious: Yes (Hospitalization, Other)
  Sender: FDA-Public Use
  Company Number: CA-SHR-CA-2007-031016

PATIENT
  Age: 43 Year
  Sex: Female
  Weight: 84 kg

DRUGS (8)
  1. BETASERON [Suspect]
     Indication: RELAPSING-REMITTING MULTIPLE SCLEROSIS
     Dosage: 8 MIU, EVERY 2D
     Route: 058
     Dates: start: 20010607
  2. BACLOFEN [Concomitant]
     Route: 048
  3. GABAPENTIN [Concomitant]
     Route: 048
  4. LORAZEPAM [Concomitant]
     Indication: SEDATIVE THERAPY
     Route: 048
  5. NADOLOL [Concomitant]
     Indication: HYPERTENSION
     Route: 048
  6. OXYCOCET [Concomitant]
     Indication: PAIN
     Route: 048
  7. OXYCODONE HCL [Concomitant]
     Indication: PAIN
     Route: 048
  8. HYDROCHLOROTHIAZIDE [Concomitant]
     Indication: HYPERTENSION
     Route: 048

REACTIONS (6)
  - ACCIDENT [None]
  - HIP SURGERY [None]
  - HOT FLUSH [None]
  - INJECTION SITE ERYTHEMA [None]
  - LIMB INJURY [None]
  - URTICARIA [None]
